FAERS Safety Report 5911554-8 (Version None)
Quarter: 2008Q4

REPORT INFORMATION
  Report Type: 
  Country: None (occurrence: None)
  Receive Date: 20081003
  Receipt Date: 20080923
  Transmission Date: 20090506
  Serious: Yes (Hospitalization)
  Sender: FDA-Public Use
  Company Number: 2008BI025188

PATIENT
  Age: 65 Year
  Sex: Female

DRUGS (1)
  1. AVONEX [Suspect]
     Indication: MULTIPLE SCLEROSIS
     Dosage: 30 UG;QW;IM 30 UG;QW;IM
     Route: 030

REACTIONS (3)
  - MUSCULAR WEAKNESS [None]
  - OPTIC NEURITIS [None]
  - TRIGEMINAL NEURALGIA [None]
